FAERS Safety Report 16657711 (Version 2)
Quarter: 2019Q3

REPORT INFORMATION
  Report Type: Spontaneous
  Country: US (occurrence: US)
  Receive Date: 20190801
  Receipt Date: 20190910
  Transmission Date: 20191004
  Serious: No
  Sender: FDA-Public Use
  Company Number: US-009507513-1907USA016844

PATIENT
  Sex: Female
  Weight: 82.09 kg

DRUGS (8)
  1. NOVAREL [Concomitant]
     Active Substance: CHORIOGONADOTROPIN ALFA
  2. FOLLISTIM [Suspect]
     Active Substance: FOLLITROPIN
     Indication: INFERTILITY FEMALE
     Dosage: 150 INTERNATIONAL UNIT, QD
     Route: 058
     Dates: start: 20190601, end: 20190611
  3. GANIRELIX ACETATE INJECTION [Suspect]
     Active Substance: GANIRELIX ACETATE
     Indication: IN VITRO FERTILISATION
  4. PIOGLITAZONE. [Concomitant]
     Active Substance: PIOGLITAZONE
  5. FOLLISTIM [Suspect]
     Active Substance: FOLLITROPIN
     Indication: IN VITRO FERTILISATION
  6. GANIRELIX ACETATE INJECTION [Suspect]
     Active Substance: GANIRELIX ACETATE
     Indication: INFERTILITY FEMALE
     Dosage: 75 INTERNATIONAL UNIT, QD
     Route: 058
     Dates: start: 20190607, end: 20190611
  7. ESTRADIOL. [Concomitant]
     Active Substance: ESTRADIOL
  8. MENOPUR [Concomitant]
     Active Substance: FOLLITROPIN\LUTEINIZING HORMONE

REACTIONS (4)
  - Nausea [Recovered/Resolved]
  - Headache [Recovered/Resolved]
  - Fatigue [Recovered/Resolved]
  - Maternal exposure before pregnancy [Unknown]

NARRATIVE: CASE EVENT DATE: 2019
